FAERS Safety Report 6739812-8 (Version None)
Quarter: 2010Q2

REPORT INFORMATION
  Report Type: 
  Country: None (occurrence: None)
  Receive Date: 20100525
  Receipt Date: 20100512
  Transmission Date: 20101027
  Serious: Yes (Other)
  Sender: FDA-Public Use
  Company Number: PHHY2010BE30528

PATIENT
  Age: 11 Year
  Sex: Male

DRUGS (1)
  1. RILATINE MR [Suspect]
     Dosage: 20 MG, UNK

REACTIONS (4)
  - CONVULSION [None]
  - GAZE PALSY [None]
  - HALLUCINATION [None]
  - TREMOR [None]
